FAERS Safety Report 10108936 (Version 1)
Quarter: 2014Q2

REPORT INFORMATION
  Report Type: Spontaneous
  Country: US (occurrence: US)
  Receive Date: 20140425
  Receipt Date: 20140425
  Transmission Date: 20141212
  Serious: Yes (Hospitalization)
  Sender: FDA-Public Use
  Company Number: US-UCBSA-118541

PATIENT
  Age: 31 Year
  Sex: Female

DRUGS (1)
  1. CIMZIA [Suspect]
     Indication: PSORIASIS
     Dosage: 200 MG
     Route: 058
     Dates: start: 20140308, end: 20140406

REACTIONS (5)
  - Cognitive disorder [Unknown]
  - Loss of consciousness [Unknown]
  - Memory impairment [Unknown]
  - Incoherent [Unknown]
  - Confusional state [Unknown]
